FAERS Safety Report 8957049 (Version 1)
Quarter: 2012Q4

REPORT INFORMATION
  Report Type: 
  Country: RU (occurrence: RU)
  Receive Date: 20121211
  Receipt Date: 20121211
  Transmission Date: 20130627
  Serious: Yes (Other)
  Sender: FDA-Public Use
  Company Number: RU-MERCK-1212RUS003204

PATIENT
  Age: 71 Year
  Sex: Female

DRUGS (5)
  1. COZAAR [Suspect]
     Dosage: UNK
     Route: 048
  2. CONCOR [Concomitant]
     Dosage: UNK
  3. ISOPTIN [Concomitant]
  4. PRESTARIUM (PERINDOPRIL ERBUMINE) [Concomitant]
  5. PAXIL [Concomitant]

REACTIONS (5)
  - Hypoacusis [Unknown]
  - Tinnitus [Unknown]
  - Blood pressure fluctuation [Unknown]
  - Blood pressure increased [Unknown]
  - Blood pressure decreased [Unknown]
